FAERS Safety Report 10553050 (Version 1)
Quarter: 2014Q4

REPORT INFORMATION
  Report Type: Spontaneous
  Country: IN (occurrence: IN)
  Receive Date: 20141029
  Receipt Date: 20141029
  Transmission Date: 20150529
  Serious: Yes (Other)
  Sender: FDA-Public Use
  Company Number: IN-BAXTER-2014BAX063393

PATIENT
  Age: 45 Year
  Sex: Male

DRUGS (1)
  1. CIPROFLOXACIN. [Suspect]
     Active Substance: CIPROFLOXACIN
     Indication: DENGUE FEVER
     Route: 065

REACTIONS (2)
  - Staphylococcal infection [Recovered/Resolved with Sequelae]
  - Endophthalmitis [Recovered/Resolved with Sequelae]
